FAERS Safety Report 21148644 (Version 1)
Quarter: 2022Q3

REPORT INFORMATION
  Report Type: Report from Study
  Country: US (occurrence: US)
  Receive Date: 20220729
  Receipt Date: 20220729
  Transmission Date: 20221027
  Serious: Yes (Death, Hospitalization)
  Sender: FDA-Public Use
  Company Number: US-BAYER-2022A089915

PATIENT
  Age: 73 Year
  Sex: Male
  Weight: 83.447 kg

DRUGS (6)
  1. ADEMPAS [Suspect]
     Active Substance: RIOCIGUAT
     Indication: Pulmonary arterial hypertension
     Dosage: UNK
     Dates: start: 20220303
  2. ADEMPAS [Suspect]
     Active Substance: RIOCIGUAT
     Indication: Pulmonary arterial hypertension
     Dosage: 2.5 MG, TID
     Route: 048
  3. REMODULIN [Concomitant]
     Active Substance: TREPROSTINIL
     Route: 058
  4. OPSUMIT [Concomitant]
     Active Substance: MACITENTAN
  5. ELIQUIS [Concomitant]
     Active Substance: APIXABAN
  6. DILTIAZEM [Concomitant]
     Active Substance: DILTIAZEM

REACTIONS (2)
  - Hypervolaemia [None]
  - Death [Fatal]

NARRATIVE: CASE EVENT DATE: 20220101
